FAERS Safety Report 18508088 (Version 3)
Quarter: 2020Q4

REPORT INFORMATION
  Report Type: Report from Study
  Country: BE (occurrence: BE)
  Receive Date: 20201116
  Receipt Date: 20201204
  Transmission Date: 20210114
  Serious: Yes (Hospitalization)
  Sender: FDA-Public Use
  Company Number: BE-PFIZER INC-2020444374

PATIENT
  Age: 67 Year
  Sex: Male
  Weight: 100 kg

DRUGS (12)
  1. COVERAM [Concomitant]
     Active Substance: AMLODIPINE\PERINDOPRIL
     Indication: HYPERTENSION
     Dosage: [AMLODIPINE BESILATE 10MG]/[PERINDOPRIL ARGININE 5MG], 1X/DAY
     Route: 048
  2. EMCORETIC [Concomitant]
     Active Substance: BISOPROLOL FUMARATE\HYDROCHLOROTHIAZIDE
     Indication: CARDIOVASCULAR DISORDER
     Dosage: [BISOPROLOL FUMARATE 10MG]/[HYDROCHLOROTHIAZIDE 25MG], 1X/DAY
     Route: 048
  3. TRADONAL [Concomitant]
     Active Substance: TRAMADOL HYDROCHLORIDE
     Indication: PAIN
     Dosage: 100 MG, 2X/DAY
     Route: 048
     Dates: start: 20190923
  4. ALDACTONE [Concomitant]
     Active Substance: SPIRONOLACTONE
     Indication: HYPERTENSION
     Dosage: 25 MG, 1X/DAY
     Route: 048
  5. PARACETAMOL [Concomitant]
     Active Substance: ACETAMINOPHEN
     Indication: PAIN
     Dosage: 1 G, AS NEEDED
     Route: 048
  6. TALAZOPARIB. [Suspect]
     Active Substance: TALAZOPARIB
     Indication: PROSTATE CANCER METASTATIC
     Dosage: DAILY
     Route: 048
     Dates: start: 20200630, end: 20201109
  7. EMCORETIC [Concomitant]
     Active Substance: BISOPROLOL FUMARATE\HYDROCHLOROTHIAZIDE
     Indication: HYPERTENSION
  8. FIRMAGON [Concomitant]
     Active Substance: DEGARELIX ACETATE
     Indication: PROSTATE CANCER
     Dosage: UNK, ONCE A MONTH
     Route: 030
     Dates: start: 20190808
  9. STEOVIT D3 [Concomitant]
     Active Substance: CALCIUM CARBONATE\CHOLECALCIFEROL
     Indication: MINERAL SUPPLEMENTATION
  10. APOCARD [Concomitant]
     Active Substance: FLECAINIDE ACETATE
     Indication: ARRHYTHMIA
     Dosage: 150 MG, 1X/DAY
     Route: 048
  11. STEOVIT D3 [Concomitant]
     Active Substance: CALCIUM CARBONATE\CHOLECALCIFEROL
     Indication: VITAMIN SUPPLEMENTATION
     Dosage: [CALCIUM CARBONATE 1G]/[COLECALCIFEROL 0.8G], 1X/DAY
     Route: 048
  12. ENZALUTAMIDE [Suspect]
     Active Substance: ENZALUTAMIDE
     Indication: PROSTATE CANCER METASTATIC
     Dosage: 160 MG, DAILY
     Route: 048
     Dates: start: 20200630, end: 20201109

REACTIONS (1)
  - Delirium [Recovered/Resolved]

NARRATIVE: CASE EVENT DATE: 20201108
